FAERS Safety Report 21059411 (Version 1)
Quarter: 2022Q3

REPORT INFORMATION
  Report Type: Spontaneous
  Country: US (occurrence: None)
  Receive Date: 20220708
  Receipt Date: 20220708
  Transmission Date: 20221027
  Serious: Yes (Hospitalization)
  Sender: FDA-Public Use
  Company Number: None

PATIENT
  Sex: Male

DRUGS (13)
  1. GLATIRAMER [Suspect]
     Active Substance: GLATIRAMER
     Indication: Multiple sclerosis
     Route: 058
     Dates: start: 20191220
  2. ASPIRIN [Concomitant]
     Active Substance: ASPIRIN
  3. ATORVASTATIN [Concomitant]
     Active Substance: ATORVASTATIN
  4. B COMPLEX +C [Concomitant]
  5. CALCIUM POW [Concomitant]
  6. DIAZEPAM [Concomitant]
     Active Substance: DIAZEPAM
  7. KP VITAMIN D [Concomitant]
  8. LISINOPRIL [Concomitant]
  9. METOPROL SUC [Concomitant]
  10. MULTIVITAMIN TAB MEN 50+ [Concomitant]
  11. OMEGA-3 [Concomitant]
  12. POTASSIUM POW CHLORIDE [Concomitant]
  13. ROPINIROLE [Concomitant]

REACTIONS (2)
  - Muscle spasms [None]
  - COVID-19 [None]
